FAERS Safety Report 5644777-6 (Version None)
Quarter: 2008Q1

REPORT INFORMATION
  Report Type: 
  Country: None (occurrence: None)
  Receive Date: 20080229
  Receipt Date: 20070723
  Transmission Date: 20080703
  Serious: No
  Sender: FDA-Public Use
  Company Number: A0666616A

PATIENT
  Sex: Female

DRUGS (2)
  1. VALTREX [Suspect]
     Dosage: 2CAPL TWICE PER DAY
     Dates: start: 20070701, end: 20070701
  2. ZITHROMAX [Concomitant]
     Dates: start: 20070701

REACTIONS (1)
  - ORAL HERPES [None]
